FAERS Safety Report 10240142 (Version 3)
Quarter: 2014Q4

REPORT INFORMATION
  Report Type: Report from Study
  Country: BR (occurrence: BR)
  Receive Date: 20140617
  Receipt Date: 20141013
  Transmission Date: 20150528
  Serious: Yes (Death, Hospitalization, Other)
  Sender: FDA-Public Use
  Company Number: BR-ROCHE-1419509

PATIENT
  Sex: Female
  Weight: 75 kg

DRUGS (4)
  1. MABTHERA [Suspect]
     Active Substance: RITUXIMAB
     Indication: RHEUMATOID ARTHRITIS
     Route: 042
     Dates: start: 20101001, end: 20101101
  2. ADALAT [Concomitant]
     Active Substance: NIFEDIPINE
  3. ASPIRIN. [Concomitant]
     Active Substance: ASPIRIN
  4. SIMVASTATIN. [Concomitant]
     Active Substance: SIMVASTATIN

REACTIONS (4)
  - Abdominal sepsis [Fatal]
  - Cerebrovascular accident [Not Recovered/Not Resolved]
  - Septic shock [Fatal]
  - Hypertension [Not Recovered/Not Resolved]
